FAERS Safety Report 5931381-5 (Version None)
Quarter: 2008Q4

REPORT INFORMATION
  Report Type: 
  Country: None (occurrence: None)
  Receive Date: 20081023
  Receipt Date: 20060720
  Transmission Date: 20090506
  Serious: Yes (Hospitalization, Other)
  Sender: FDA-Public Use
  Company Number: 2006AL002240

PATIENT
  Age: 50 Year
  Sex: Female

DRUGS (6)
  1. DICLOFENAC SODIUM [Suspect]
     Indication: PAIN IN EXTREMITY
     Dosage: 100 MG; PO
     Route: 048
     Dates: start: 20060602, end: 20060602
  2. ASPIRIN [Concomitant]
  3. ACETAMINOPHEN W/ CODEINE [Concomitant]
  4. COD LIVER OIL [Concomitant]
  5. GLUCOSAMINE [Concomitant]
  6. EVENING PRIMROSE OIL [Concomitant]

REACTIONS (6)
  - AGGRESSION [None]
  - FACIAL PALSY [None]
  - INCOHERENT [None]
  - LOSS OF CONSCIOUSNESS [None]
  - PALLOR [None]
  - PRURITUS [None]
